FAERS Safety Report 8544828-5 (Version None)
Quarter: 2012Q3

REPORT INFORMATION
  Report Type: 
  Country: None (occurrence: None)
  Receive Date: 20120727
  Receipt Date: 20120719
  Transmission Date: 20120928
  Serious: Yes (Hospitalization, Other)
  Sender: FDA-Public Use
  Company Number: PT-ROCHE-1090528

PATIENT
  Sex: Female

DRUGS (4)
  1. METHOTREXATE [Concomitant]
     Indication: RHEUMATOID ARTHRITIS
     Route: 048
  2. ACTEMRA [Suspect]
     Indication: RHEUMATOID ARTHRITIS
     Route: 042
     Dates: start: 20110601
  3. ACTEMRA [Suspect]
     Route: 042
     Dates: start: 20110901, end: 20120401
  4. ACTEMRA [Suspect]
     Dates: start: 20120501, end: 20120530

REACTIONS (5)
  - HYPERTENSION [None]
  - RHEUMATOID ARTHRITIS [None]
  - RESPIRATORY DISTRESS [None]
  - CHEST DISCOMFORT [None]
  - FACE OEDEMA [None]
